FAERS Safety Report 15343725 (Version 1)
Quarter: 2018Q3

REPORT INFORMATION
  Report Type: Other
  Country: US (occurrence: US)
  Receive Date: 20180903
  Receipt Date: 20180903
  Transmission Date: 20181010
  Serious: Yes (Other)
  Sender: FDA-Public Use
  Company Number: US-DEXPHARM-20180654

PATIENT
  Age: 17 Year
  Sex: Male

DRUGS (5)
  1. LEVETIRACETAM. [Suspect]
     Active Substance: LEVETIRACETAM
  2. OLANZAPINE. [Suspect]
     Active Substance: OLANZAPINE
  3. CLORAZEPATE [Suspect]
     Active Substance: CLORAZEPATE DIPOTASSIUM
  4. ARIPIPRAZOLE. [Suspect]
     Active Substance: ARIPIPRAZOLE
  5. TRAZODONE [Suspect]
     Active Substance: TRAZODONE HYDROCHLORIDE

REACTIONS (7)
  - Sleep disorder [Unknown]
  - Intentional self-injury [Not Recovered/Not Resolved]
  - Nephrocalcinosis [Unknown]
  - Constipation [Unknown]
  - Urinary retention [Unknown]
  - Aggression [Unknown]
  - Oesophageal stenosis [Unknown]
